FAERS Safety Report 9230458 (Version 2)
Quarter: 2013Q2

REPORT INFORMATION
  Report Type: Spontaneous
  Country: IT (occurrence: IT)
  Receive Date: 20130415
  Receipt Date: 20130509
  Transmission Date: 20140414
  Serious: Yes (Hospitalization)
  Sender: FDA-Public Use
  Company Number: IT-PFIZER INC-2013113965

PATIENT
  Age: 64 Year
  Sex: Male

DRUGS (2)
  1. CARBOPLATINO PFIZER ITALIA [Suspect]
     Indication: MALIGNANT MEDIASTINAL NEOPLASM
     Dosage: 215 MG, CYCLIC
     Route: 042
     Dates: start: 20130205, end: 20130205
  2. GEMCITABINE [Suspect]
     Indication: MALIGNANT MEDIASTINAL NEOPLASM
     Dosage: 950 MG, CYCLIC
     Route: 042
     Dates: start: 20130205, end: 20130212

REACTIONS (5)
  - Chills [Recovering/Resolving]
  - Cough [Recovering/Resolving]
  - Odynophagia [Recovering/Resolving]
  - Pyrexia [Recovering/Resolving]
  - Off label use [Unknown]
